FAERS Safety Report 8602471 (Version 3)
Quarter: 2013Q1

REPORT INFORMATION
  Report Type: Spontaneous
  Country: US (occurrence: US)
  Receive Date: 20120607
  Receipt Date: 20130103
  Transmission Date: 20140127
  Serious: Yes (Congenital Anomaly, Other)
  Sender: FDA-Public Use
  Company Number: US-PFIZER INC-2012133925

PATIENT
  Sex: Female
  Weight: 3.27 kg

DRUGS (3)
  1. ZOLOFT [Suspect]
     Dosage: UNK
     Route: 064
     Dates: start: 2002, end: 2005
  2. PRENATAL VITAMINS [Concomitant]
     Dosage: UNK
     Route: 064
  3. ZITHROMAX [Concomitant]
     Dosage: UNK
     Route: 064

REACTIONS (18)
  - Maternal exposure during pregnancy [Unknown]
  - Ventricular septal defect [Unknown]
  - Patent ductus arteriosus [Unknown]
  - Coarctation of the aorta [Unknown]
  - Pulmonary valve stenosis [Unknown]
  - Congenital heart valve disorder [Unknown]
  - Pulmonary malformation [Unknown]
  - Exomphalos [Unknown]
  - Congenital aortic anomaly [Unknown]
  - Transposition of the great vessels [Unknown]
  - Hypoplastic left heart syndrome [Unknown]
  - Congenital aortic stenosis [Unknown]
  - Mitral valve incompetence [Unknown]
  - Aortic valve incompetence [Unknown]
  - Malformation venous [Unknown]
  - Congenital anomaly [Unknown]
  - Atrial septal defect [Unknown]
  - Vascular anomaly [Unknown]
